FAERS Safety Report 11552184 (Version 1)
Quarter: 2015Q3

REPORT INFORMATION
  Report Type: Spontaneous
  Country: US (occurrence: US)
  Receive Date: 20150925
  Receipt Date: 20150925
  Transmission Date: 20151125
  Serious: Yes (Hospitalization)
  Sender: FDA-Public Use
  Company Number: US-AUROBINDO-AUR-APL-2015-08500

PATIENT
  Age: 28 Year
  Sex: Male

DRUGS (5)
  1. LIDOCAINE. [Suspect]
     Active Substance: LIDOCAINE
     Indication: GENERAL ANAESTHESIA
     Dosage: UNK
     Route: 065
  2. FENTANYL. [Suspect]
     Active Substance: FENTANYL
     Indication: GENERAL ANAESTHESIA
     Route: 065
  3. MIDAZOLAM [Suspect]
     Active Substance: MIDAZOLAM\MIDAZOLAM HYDROCHLORIDE
     Indication: GENERAL ANAESTHESIA
     Route: 065
  4. SUCCINYLCHOLINE [Suspect]
     Active Substance: SUCCINYLCHOLINE
     Indication: GENERAL ANAESTHESIA
     Route: 065
  5. PROPOFOL. [Suspect]
     Active Substance: PROPOFOL
     Indication: GENERAL ANAESTHESIA
     Route: 065

REACTIONS (9)
  - Hypotension [Recovered/Resolved]
  - Inferior vena cava dilatation [Recovered/Resolved]
  - Systolic dysfunction [Recovered/Resolved]
  - Circulatory collapse [Recovered/Resolved]
  - Mean arterial pressure decreased [Recovered/Resolved]
  - Hepatic vein dilatation [Recovered/Resolved]
  - Tachycardia [Recovered/Resolved]
  - Viral pericarditis [Recovered/Resolved]
  - Cardiac tamponade [Recovered/Resolved]
